FAERS Safety Report 17653748 (Version 7)
Quarter: 2021Q3

REPORT INFORMATION
  Report Type: Other
  Country: CA (occurrence: CA)
  Receive Date: 20200410
  Receipt Date: 20210923
  Transmission Date: 20211014
  Serious: Yes (Hospitalization, Other)
  Sender: FDA-Public Use
  Company Number: CA-ROCHE-2576212

PATIENT
  Age: 62 Year
  Sex: Female

DRUGS (2)
  1. OCREVUS [Suspect]
     Active Substance: OCRELIZUMAB
     Indication: RELAPSING-REMITTING MULTIPLE SCLEROSIS
     Dosage: 300 MG AT DAY 0 AND 14, THEN 600 MG EVERY 6 MONTH
     Route: 042
     Dates: start: 20190925
  2. OCREVUS [Suspect]
     Active Substance: OCRELIZUMAB
     Dosage: 600 MG EVERY 6 MONTH
     Route: 042

REACTIONS (14)
  - Choking [Unknown]
  - Influenza [Recovered/Resolved]
  - Cough [Not Recovered/Not Resolved]
  - Fall [Unknown]
  - Nephrolithiasis [Unknown]
  - Musculoskeletal pain [Not Recovered/Not Resolved]
  - Skin fissures [Unknown]
  - Feeling hot [Unknown]
  - Ill-defined disorder [Not Recovered/Not Resolved]
  - Muscular weakness [Recovered/Resolved]
  - Vulval abscess [Not Recovered/Not Resolved]
  - Furuncle [Not Recovered/Not Resolved]
  - Hypokinesia [Not Recovered/Not Resolved]
  - Fall [Unknown]

NARRATIVE: CASE EVENT DATE: 20200225
